FAERS Safety Report 9725638 (Version 3)
Quarter: 2013Q4

REPORT INFORMATION
  Report Type: Spontaneous
  Country: ES (occurrence: ES)
  Receive Date: 20131203
  Receipt Date: 20131213
  Transmission Date: 20140711
  Serious: Yes (Death, Other)
  Sender: FDA-Public Use
  Company Number: ES-009507513-1309ESP001955

PATIENT
  Age: 73 Year
  Sex: Male

DRUGS (1)
  1. ONCOTICE [Suspect]
     Indication: BLADDER NEOPLASM
     Dosage: 12 INSTILLATIONS OF 2-8X10^8 UFC
     Route: 043
     Dates: start: 200807, end: 200907

REACTIONS (9)
  - Multi-organ failure [Fatal]
  - Aortic aneurysm repair [Unknown]
  - Septic shock [Fatal]
  - Haemorrhage [Fatal]
  - Mycobacterium tuberculosis complex test positive [Fatal]
  - Aortic aneurysm [Fatal]
  - Aortic aneurysm rupture [Unknown]
  - Lymphadenitis [Unknown]
  - Staphylococcal infection [Unknown]
